FAERS Safety Report 6557458-1 (Version None)
Quarter: 2010Q1

REPORT INFORMATION
  Report Type: 
  Country: None (occurrence: None)
  Receive Date: 20100127
  Receipt Date: 20100127
  Transmission Date: 20100710
  Serious: Yes (Hospitalization)
  Sender: FDA-Public Use
  Company Number: None

PATIENT
  Age: 91 Year
  Sex: Male
  Weight: 67.1 kg

DRUGS (20)
  1. COUMADIN [Suspect]
     Indication: ATRIAL FIBRILLATION
     Dosage: 7 MG QHS PO, CHRONIC
     Route: 048
  2. LASIX [Concomitant]
  3. CARVEDILOL [Concomitant]
  4. DIGOXIN [Concomitant]
  5. FAMOTIDINE [Concomitant]
  6. VELODORM [Concomitant]
  7. LISINOPRIL [Concomitant]
  8. POTASSIUM CL [Concomitant]
  9. PRAVASTATIN [Concomitant]
  10. RISPERIDONE [Concomitant]
  11. LEXAPRO [Concomitant]
  12. TRAZODONE [Concomitant]
  13. ACETAMINOPHEN [Concomitant]
  14. ALMACONE [Concomitant]
  15. GUAIFENESIN [Concomitant]
  16. LOPERAMIDE [Concomitant]
  17. MDM [Concomitant]
  18. PROMETHAZINE [Concomitant]
  19. HALDOL [Concomitant]
  20. RISPERIDONE [Concomitant]

REACTIONS (7)
  - COAGULOPATHY [None]
  - HAEMATURIA [None]
  - HAEMATURIA TRAUMATIC [None]
  - HYPERKALAEMIA [None]
  - HYPOXIA [None]
  - INTERNATIONAL NORMALISED RATIO INCREASED [None]
  - URINARY TRACT INFECTION [None]
